FAERS Safety Report 7998704-7 (Version None)
Quarter: 2011Q4

REPORT INFORMATION
  Report Type: 
  Country: None (occurrence: None)
  Receive Date: 20111221
  Receipt Date: 20111214
  Transmission Date: 20120403
  Serious: Yes (Other)
  Sender: FDA-Public Use
  Company Number: IT-PFIZER INC-2011298264

PATIENT
  Age: 62 Year
  Sex: Male

DRUGS (4)
  1. COLISTIN [Concomitant]
     Dosage: UNK
  2. AMIKACIN [Concomitant]
     Dosage: 1G DAILY
     Dates: start: 20111201, end: 20111201
  3. TYGACIL [Suspect]
     Dosage: 50 MG, 2X/DAY
     Dates: end: 20111214
  4. TYGACIL [Suspect]
     Dosage: 100 MG, 2X/DAY
     Route: 042
     Dates: start: 20111121

REACTIONS (3)
  - QUADRIPARESIS [None]
  - RHABDOMYOLYSIS [None]
  - HYPERNATRAEMIA [None]
